FAERS Safety Report 25286359 (Version 1)
Quarter: 2025Q2

REPORT INFORMATION
  Report Type: Spontaneous
  Country: US (occurrence: US)
  Receive Date: 20250509
  Receipt Date: 20250509
  Transmission Date: 20250717
  Serious: No
  Sender: CURRAX PHARMACEUTICALS
  Company Number: US-CURRAX PHARMACEUTICALS LLC-US-2024CUR002165

PATIENT
  Sex: Female

DRUGS (2)
  1. DOXEPIN [Suspect]
     Active Substance: DOXEPIN
     Indication: Product used for unknown indication
     Route: 065
  2. DOXEPIN [Suspect]
     Active Substance: DOXEPIN
     Route: 065

REACTIONS (4)
  - Headache [Unknown]
  - Illness [Unknown]
  - Anxiety [Unknown]
  - Nausea [Unknown]
